FAERS Safety Report 11925119 (Version 1)
Quarter: 2016Q1

REPORT INFORMATION
  Report Type: Spontaneous
  Country: TR (occurrence: TR)
  Receive Date: 20160118
  Receipt Date: 20160118
  Transmission Date: 20160526
  Serious: Yes (Other)
  Sender: FDA-Public Use
  Company Number: TR-BAYER-2016-004560

PATIENT
  Age: 62 Year
  Sex: Male

DRUGS (5)
  1. SUNITINIB [Concomitant]
     Active Substance: SUNITINIB
     Indication: HEPATOCELLULAR CARCINOMA
  2. SUNITINIB [Concomitant]
     Active Substance: SUNITINIB
     Indication: RENAL CELL CARCINOMA
  3. DOXORUBICIN [Concomitant]
     Active Substance: DOXORUBICIN
     Indication: HEPATOCELLULAR CARCINOMA
  4. SORAFENIB (RAF KINASE INHIBITOR) [Suspect]
     Active Substance: SORAFENIB
     Indication: HEPATOCELLULAR CARCINOMA
  5. SORAFENIB (RAF KINASE INHIBITOR) [Suspect]
     Active Substance: SORAFENIB
     Indication: RENAL CELL CARCINOMA

REACTIONS (3)
  - Confusional state [None]
  - Fatigue [None]
  - Asthenia [None]
